FAERS Safety Report 4880249-4 (Version None)
Quarter: 2006Q1

REPORT INFORMATION
  Report Type: 
  Country: None (occurrence: None)
  Receive Date: 20060113
  Receipt Date: 20060104
  Transmission Date: 20060701
  Serious: Yes (Life-Threatening, Hospitalization)
  Sender: FDA-Public Use
  Company Number: US-ABBOTT-06P-163-0321165-00

PATIENT
  Sex: Female
  Weight: 60.836 kg

DRUGS (11)
  1. HUMIRA [Suspect]
     Indication: RHEUMATOID ARTHRITIS
     Route: 058
     Dates: start: 20030101, end: 20051130
  2. HUMIRA [Suspect]
     Route: 058
     Dates: start: 20060104
  3. ASPIRIN [Concomitant]
     Indication: THROMBOSIS PROPHYLAXIS
     Route: 048
  4. DISOPYRAMIDE PHOSPHATE [Concomitant]
     Indication: CARDIAC DISORDER
     Route: 048
  5. RISEDRONATE SODIUM [Concomitant]
     Indication: DRUG USE FOR UNKNOWN INDICATION
     Route: 048
  6. METHOTREXATE [Concomitant]
     Indication: RHEUMATOID ARTHRITIS
     Dosage: 4 PILLS PER WEEK
     Route: 048
  7. FOLIC ACID [Concomitant]
     Indication: DRUG USE FOR UNKNOWN INDICATION
     Route: 048
  8. FELODIPINE [Concomitant]
     Indication: BLOOD PRESSURE
     Route: 048
  9. PROTONICS [Concomitant]
     Indication: GASTRIC DISORDER
     Route: 048
  10. NADOLOL [Concomitant]
     Indication: DRUG USE FOR UNKNOWN INDICATION
     Route: 048
  11. LORAZEPAM [Concomitant]
     Indication: ANXIETY
     Route: 048

REACTIONS (5)
  - BLOOD PRESSURE INCREASED [None]
  - LOSS OF CONSCIOUSNESS [None]
  - LUNG INJURY [None]
  - PNEUMOTHORAX [None]
  - RESUSCITATION [None]
